FAERS Safety Report 6903209-8 (Version None)
Quarter: 2010Q3

REPORT INFORMATION
  Report Type: 
  Country: None (occurrence: None)
  Receive Date: 20100803
  Receipt Date: 20080614
  Transmission Date: 20110219
  Serious: Yes (Other)
  Sender: FDA-Public Use
  Company Number: US-PFIZER INC-2008050649

PATIENT
  Age: 40 Year
  Sex: Male

DRUGS (9)
  1. LYRICA [Suspect]
     Indication: NEUROPATHY PERIPHERAL
  2. ENALAPRIL [Concomitant]
     Route: 048
  3. GLIPIZIDE [Concomitant]
     Route: 048
  4. LOVASTATIN [Concomitant]
     Route: 048
  5. COLCHICINE [Concomitant]
     Route: 048
  6. ACETYLSALICYLIC ACID SRT [Concomitant]
     Route: 048
  7. VITAMIN TAB [Concomitant]
     Route: 048
  8. SLO-MAG [Concomitant]
     Route: 048
  9. GLUCOSAMINE SULFATE [Concomitant]
     Route: 048

REACTIONS (2)
  - AMNESIA [None]
  - COGNITIVE DISORDER [None]
